FAERS Safety Report 17545250 (Version 2)
Quarter: 2020Q3

REPORT INFORMATION
  Report Type: Spontaneous
  Country: DE (occurrence: DE)
  Receive Date: 20200316
  Receipt Date: 20200813
  Transmission Date: 20201102
  Serious: Yes (Other)
  Sender: FDA-Public Use
  Company Number: DE-PFIZER INC-2020107733

PATIENT
  Age: 34 Year
  Sex: Female
  Weight: 76 kg

DRUGS (1)
  1. CYTOTEC [Suspect]
     Active Substance: MISOPROSTOL
     Indication: LABOUR INDUCTION
     Dosage: 2 TABLETS, UNK
     Route: 048
     Dates: start: 20151020, end: 20171021

REACTIONS (4)
  - Near death experience [Unknown]
  - Off label use [Unknown]
  - Uterine tachysystole [Recovered/Resolved with Sequelae]
  - Product use in unapproved indication [Unknown]

NARRATIVE: CASE EVENT DATE: 20151020
